FAERS Safety Report 7743603-9 (Version None)
Quarter: 2011Q3

REPORT INFORMATION
  Report Type: 
  Country: None (occurrence: None)
  Receive Date: 20110819
  Receipt Date: 20110607
  Transmission Date: 20111222
  Serious: No
  Sender: FDA-Public Use
  Company Number: 035244

PATIENT
  Sex: Male

DRUGS (3)
  1. DEPAKOTE [Concomitant]
  2. FELBATOL [Concomitant]
  3. LACOSAMIDE [Suspect]
     Dosage: 50 MG QD; 100 MG QD

REACTIONS (2)
  - GASTROINTESTINAL DISORDER [None]
  - DIARRHOEA [None]
